FAERS Safety Report 10560817 (Version 2)
Quarter: 2015Q1

REPORT INFORMATION
  Report Type: Spontaneous
  Country: IT (occurrence: IT)
  Receive Date: 20141103
  Receipt Date: 20150121
  Transmission Date: 20150720
  Serious: Yes (Life-Threatening)
  Sender: FDA-Public Use
  Company Number: IT-BRISTOL-MYERS SQUIBB COMPANY-21540125

PATIENT
  Age: 72 Year
  Sex: Female

DRUGS (8)
  1. TIKLID [Concomitant]
     Active Substance: TICLOPIDINE HYDROCHLORIDE
  2. RATACAND [Concomitant]
     Active Substance: CANDESARTAN
  3. AMARYL [Concomitant]
     Active Substance: GLIMEPIRIDE
  4. LIPONORM [Concomitant]
     Active Substance: ATORVASTATIN
  5. MODURETIC 5-50 [Concomitant]
     Active Substance: AMILORIDE HYDROCHLORIDE\HYDROCHLOROTHIAZIDE
  6. CARDURA [Concomitant]
     Active Substance: DOXAZOSIN MESYLATE
  7. OMEPRAZOL E [Concomitant]
     Active Substance: OMEPRAZOLE
  8. METFORMIN HYDROCHLORIDE. [Suspect]
     Active Substance: METFORMIN HYDROCHLORIDE
     Indication: DIABETES MELLITUS
     Dosage: 3 G, QD
     Route: 048
     Dates: end: 20140908

REACTIONS (2)
  - Lactic acidosis [Recovered/Resolved with Sequelae]
  - Acute kidney injury [Recovered/Resolved with Sequelae]

NARRATIVE: CASE EVENT DATE: 20140909
